FAERS Safety Report 8363394-0 (Version None)
Quarter: 2012Q2

REPORT INFORMATION
  Report Type: 
  Country: None (occurrence: None)
  Receive Date: 20120514
  Receipt Date: 20120507
  Transmission Date: 20120825
  Serious: Yes (Hospitalization, Other)
  Sender: FDA-Public Use
  Company Number: 2012SP024189

PATIENT
  Age: 65 Year
  Sex: Male
  Weight: 62 kg

DRUGS (17)
  1. REBETOL [Suspect]
     Indication: HEPATITIS C
     Dosage: 800 MG;QD;PO 600 MG;QD;PO, 400 MG;QD;PO, 200 MG;QD;PO
     Route: 048
     Dates: start: 20120222, end: 20120306
  2. REBETOL [Suspect]
     Indication: HEPATITIS C
     Dosage: 800 MG;QD;PO 600 MG;QD;PO, 400 MG;QD;PO, 200 MG;QD;PO
     Route: 048
     Dates: start: 20120215, end: 20120221
  3. REBETOL [Suspect]
     Indication: HEPATITIS C
     Dosage: 800 MG;QD;PO 600 MG;QD;PO, 400 MG;QD;PO, 200 MG;QD;PO
     Route: 048
     Dates: start: 20120307, end: 20120414
  4. REBETOL [Suspect]
     Indication: HEPATITIS C
     Dosage: 800 MG;QD;PO 600 MG;QD;PO, 400 MG;QD;PO, 200 MG;QD;PO
     Route: 048
     Dates: start: 20120116, end: 20120214
  5. FULMETA [Concomitant]
  6. DOMPERIDONE [Concomitant]
  7. CASTER D [Concomitant]
  8. LANSOPRAZOLE [Concomitant]
  9. LOXOPROFEN SODIUM [Concomitant]
  10. URSO /00465701/ [Concomitant]
  11. VITAMEDIN  /00176001/ [Concomitant]
  12. TELAVIC (ANTIVIRALS NOS) [Suspect]
     Indication: HEPATITIS C
     Dosage: 2250 MG;QD;PO, 1500 MG;QD;PO
     Route: 048
     Dates: start: 20120229, end: 20120410
  13. TELAVIC (ANTIVIRALS NOS) [Suspect]
     Indication: HEPATITIS C
     Dosage: 2250 MG;QD;PO, 1500 MG;QD;PO
     Route: 048
     Dates: start: 20120116, end: 20120228
  14. OLOPATADINE HCL [Concomitant]
  15. PEGINTERFERON ALFA-2B [Suspect]
     Indication: HEPATITIS C
     Dosage: 1.5 MCG/KG; ;SC
     Route: 058
     Dates: start: 20120116, end: 20120414
  16. PEGINTERFERON ALFA-2B [Suspect]
     Indication: HEPATITIS C
     Dosage: 1.5 MCG/KG; ;SC
     Route: 058
     Dates: start: 20120419
  17. XYZAL [Concomitant]

REACTIONS (10)
  - RASH [None]
  - NAUSEA [None]
  - PYREXIA [None]
  - DYSPEPSIA [None]
  - VOMITING [None]
  - HAEMOGLOBIN DECREASED [None]
  - MUCOSAL EROSION [None]
  - PRURITUS [None]
  - STOMATITIS [None]
  - APHTHOUS STOMATITIS [None]
